FAERS Safety Report 8921606 (Version 1)
Quarter: 2012Q4

REPORT INFORMATION
  Report Type: 
  Country: MX (occurrence: MX)
  Receive Date: 20121122
  Receipt Date: 20121122
  Transmission Date: 20130627
  Serious: Yes (Death)
  Sender: FDA-Public Use
  Company Number: PHHY2012MX105495

PATIENT
  Age: 77 Year
  Sex: Male

DRUGS (5)
  1. CO-DIOVAN [Suspect]
     Indication: HYPERTENSION
     Dosage: 1 DF (80mg vals/ 12.5mg HCT), daily
     Route: 048
     Dates: start: 2007, end: 20120717
  2. DICLOFENAC [Concomitant]
     Indication: ARTHRALGIA
     Dosage: 1 DF, daily
     Dates: start: 2010
  3. ACETAMINOPHEN [Concomitant]
     Indication: ARTHRALGIA
     Dosage: 1 DF, daily
     Dates: start: 2010
  4. ASPIRINA PROTECT [Concomitant]
     Indication: EMBOLISM
     Dosage: 1 DF, daily
     Dates: start: 2001
  5. POTASSIUM CITRATE [Concomitant]
     Indication: NEPHROLITHIASIS
     Dosage: 1 g, daily
     Dates: start: 1998

REACTIONS (1)
  - Myocardial infarction [Fatal]
